FAERS Safety Report 9748660 (Version 1)
Quarter: 2013Q4

REPORT INFORMATION
  Report Type: Report from Study
  Country: US (occurrence: US)
  Receive Date: 20131212
  Receipt Date: 20131212
  Transmission Date: 20140711
  Serious: Yes (Hospitalization, Other)
  Sender: FDA-Public Use
  Company Number: US-ASTELLAS-2013US012666

PATIENT
  Age: 37 Year
  Sex: Female
  Weight: 47 kg

DRUGS (18)
  1. ERLOTINIB TABLET [Suspect]
     Indication: ACUTE MYELOID LEUKAEMIA
     Dosage: 150 MG, UID/QD
     Route: 048
     Dates: start: 20131122, end: 20131129
  2. DILAUDID [Concomitant]
     Indication: PAIN
     Dosage: 2 MG, EVERY 4 HOURS PRN
     Route: 048
  3. ZOFRAN                             /00955301/ [Concomitant]
     Indication: NAUSEA
     Dosage: 8 MG, EVERY 8 HOURS PRN
     Route: 048
  4. ZOFRAN                             /00955301/ [Concomitant]
     Indication: VOMITING
  5. PHENERGAN                          /00033001/ [Concomitant]
     Indication: NAUSEA
     Dosage: 12.5 MG, EVERY 6 HOURS PRN
     Route: 048
  6. PHENERGAN                          /00033001/ [Concomitant]
     Indication: VOMITING
  7. RESTORIL                           /00393701/ [Concomitant]
     Indication: INSOMNIA
     Dosage: 15 MG, 1-2 CAPSULES AT BEDTIME PRN
     Route: 048
  8. ZANAFLEX [Concomitant]
     Indication: PRODUCT USED FOR UNKNOWN INDICATION
     Dosage: 2 MG, TID
     Route: 048
  9. INVANZ [Concomitant]
     Indication: PRODUCT USED FOR UNKNOWN INDICATION
     Dosage: 1000 MG, UID/QD
     Route: 042
  10. HEPARIN FLUSH [Concomitant]
     Indication: CENTRAL VENOUS CATHETERISATION
     Dosage: 100 ML, 1 SYRINGE IV UID/QD
     Route: 042
  11. LEVAQUIN [Concomitant]
     Indication: PRODUCT USED FOR UNKNOWN INDICATION
     Dosage: 750 MG, UID/QD
     Route: 048
  12. METHYLPREDNISOLONE [Concomitant]
     Indication: PRODUCT USED FOR UNKNOWN INDICATION
     Dosage: 2.5 DF, BID
     Route: 048
  13. PANTOPRAZOLE [Concomitant]
     Indication: PRODUCT USED FOR UNKNOWN INDICATION
     Dosage: 40 MG, BID
     Route: 048
  14. PENTAMIDINE [Concomitant]
     Indication: PROPHYLAXIS
     Dosage: 200 MG, Q3W
     Route: 042
  15. LYRICA [Concomitant]
     Indication: PRODUCT USED FOR UNKNOWN INDICATION
     Dosage: 75 MG, BID
     Route: 048
  16. BACTRIM [Concomitant]
     Indication: PRODUCT USED FOR UNKNOWN INDICATION
     Dosage: 800/160 MG, BID
     Route: 048
  17. VALTREX [Concomitant]
     Indication: PRODUCT USED FOR UNKNOWN INDICATION
     Dosage: 500 MG, UID/QD
     Route: 048
  18. VORICONAZOLE [Concomitant]
     Indication: PRODUCT USED FOR UNKNOWN INDICATION
     Dosage: 1.5 DF, BID
     Route: 048

REACTIONS (13)
  - Off label use [Unknown]
  - Hypomagnesaemia [Unknown]
  - Cachexia [Unknown]
  - Urinary retention [Unknown]
  - Breath sounds abnormal [Unknown]
  - Suprapubic pain [Unknown]
  - Abdominal pain [Unknown]
  - Flank pain [Unknown]
  - Pharyngitis [Unknown]
  - Diarrhoea [Unknown]
  - Cough [Unknown]
  - Mucosal inflammation [Unknown]
  - Dry skin [Unknown]
